FAERS Safety Report 19633826 (Version 1)
Quarter: 2021Q3

REPORT INFORMATION
  Report Type: Spontaneous
  Country: GB (occurrence: GB)
  Receive Date: 20210730
  Receipt Date: 20210730
  Transmission Date: 20211014
  Serious: Yes (Life-Threatening)
  Sender: FDA-Public Use
  Company Number: GB-SUN PHARMACEUTICAL INDUSTRIES LTD-2021RR-306152

PATIENT
  Age: 44 Year
  Sex: Female
  Weight: 100 kg

DRUGS (13)
  1. CITALOPRAM [Concomitant]
     Active Substance: CITALOPRAM HYDROBROMIDE
     Indication: ILL-DEFINED DISORDER
     Dosage: ONE TO BE TAKEN DAILY
     Route: 065
     Dates: start: 20210426
  2. PREGABALIN. [Concomitant]
     Active Substance: PREGABALIN
     Indication: ILL-DEFINED DISORDER
     Dosage: TAKE ONE TWICE DAILY
     Route: 065
     Dates: start: 20210705
  3. SERETIDE [Concomitant]
     Active Substance: FLUTICASONE PROPIONATE\SALMETEROL XINAFOATE
     Indication: ILL-DEFINED DISORDER
     Dosage: INHALE 2 DOSES TWICE DAILY
     Route: 065
     Dates: start: 20200204
  4. EPIPEN [Concomitant]
     Active Substance: EPINEPHRINE
     Indication: ILL-DEFINED DISORDER
     Dosage: USE AS DIRECTED
     Route: 065
     Dates: start: 20190221
  5. SALBUTAMOL [Concomitant]
     Active Substance: ALBUTEROL
     Indication: ILL-DEFINED DISORDER
     Dosage: INHALE 2 DOSES AS NEEDED
     Route: 065
     Dates: start: 20171220
  6. LAXIDO [Concomitant]
     Active Substance: POLYETHYLENE GLYCOL 3350\POTASSIUM CHLORIDE\SODIUM BICARBONATE\SODIUM CHLORIDE
     Indication: ILL-DEFINED DISORDER
     Dosage: USE AS DIRECTED
     Route: 065
     Dates: start: 20210608, end: 20210706
  7. TIBOLONE [Concomitant]
     Active Substance: TIBOLONE
     Indication: ILL-DEFINED DISORDER
     Dosage: TAKE ONE DAILY  AS PER GYNAE
     Route: 065
     Dates: start: 20200701
  8. AMITRIPTYLINE HYDROCHLORIDE. [Concomitant]
     Active Substance: AMITRIPTYLINE HYDROCHLORIDE
     Indication: ILL-DEFINED DISORDER
     Dosage: 1/2 AT NIGHT INITIALLY INCREASING TO 1 OD
     Route: 065
     Dates: start: 20210712
  9. LANSOPRAZOLE. [Concomitant]
     Active Substance: LANSOPRAZOLE
     Indication: ILL-DEFINED DISORDER
     Dosage: TAKE ONE ONCE DAILY
     Route: 065
     Dates: start: 20200113
  10. LUPRON DEPOT [Concomitant]
     Active Substance: LEUPROLIDE ACETATE
     Indication: ILL-DEFINED DISORDER
     Dosage: USE AS DIRECTED
     Route: 065
     Dates: start: 20200211
  11. PREGABALIN. [Suspect]
     Active Substance: PREGABALIN
     Indication: ILL-DEFINED DISORDER
     Dosage: UNK
     Route: 065
     Dates: start: 20210714
  12. COCODAMOL [Concomitant]
     Active Substance: ACETAMINOPHEN\CODEINE PHOSPHATE
     Indication: ILL-DEFINED DISORDER
     Dosage: ONE OR TWO TO BE TAKEN FOUR TIMES A DAY IF NEEDED
     Route: 065
     Dates: start: 20210621
  13. DIAZEPAM. [Concomitant]
     Active Substance: DIAZEPAM
     Indication: ILL-DEFINED DISORDER
     Dosage: ONE THREE TIMES DAILY
     Route: 065
     Dates: start: 20210602, end: 20210609

REACTIONS (1)
  - Adverse drug reaction [Recovered/Resolved]

NARRATIVE: CASE EVENT DATE: 20210714
